FAERS Safety Report 12138845 (Version 2)
Quarter: 2016Q1

REPORT INFORMATION
  Report Type: Spontaneous
  Country: US (occurrence: US)
  Receive Date: 20160302
  Receipt Date: 20160316
  Transmission Date: 20160526
  Serious: Yes (Other)
  Sender: FDA-Public Use
  Company Number: US-MEDA-2016020048

PATIENT
  Age: 15 Year
  Sex: Female
  Weight: 64 kg

DRUGS (3)
  1. ENTOCORT [Concomitant]
     Active Substance: BUDESONIDE
  2. GASTROCROM [Suspect]
     Active Substance: CROMOLYN SODIUM
     Indication: MASTOCYTOSIS
     Route: 048
     Dates: start: 201512, end: 201512
  3. GASTROCROM [Suspect]
     Active Substance: CROMOLYN SODIUM
     Indication: MASTOCYTOSIS
     Route: 048
     Dates: start: 201510, end: 201512

REACTIONS (16)
  - Gallbladder disorder [Recovered/Resolved]
  - Diarrhoea [Unknown]
  - Cyanosis [Not Recovered/Not Resolved]
  - Disturbance in attention [Recovered/Resolved]
  - Dizziness [Recovered/Resolved]
  - Viral infection [Unknown]
  - Weight decreased [Unknown]
  - Discomfort [Unknown]
  - Feeling abnormal [Recovered/Resolved]
  - Fatigue [Recovered/Resolved]
  - Cholelithiasis [Recovered/Resolved]
  - Feeding disorder [Unknown]
  - Pain [Unknown]
  - Nasopharyngitis [Recovered/Resolved]
  - Headache [Recovered/Resolved]
  - Inappropriate schedule of drug administration [Recovered/Resolved]

NARRATIVE: CASE EVENT DATE: 201510
